FAERS Safety Report 16845610 (Version 2)
Quarter: 2019Q4

REPORT INFORMATION
  Report Type: Report from Study
  Country: ZA (occurrence: ZA)
  Receive Date: 20190924
  Receipt Date: 20191007
  Transmission Date: 20200122
  Serious: Yes (Life-Threatening, Hospitalization)
  Sender: FDA-Public Use
  Company Number: ZA-SA-2019SA264268

PATIENT
  Age: 56 Year
  Sex: Female

DRUGS (5)
  1. INSULIN GLULISINE [Suspect]
     Active Substance: INSULIN GLULISINE
     Dosage: 10 U, TID (BEFORE BREAKFAST, LUNCH AND SUPPER)
     Dates: start: 20190902
  2. HUMULIN NOS [Concomitant]
     Active Substance: INSULIN HUMAN
     Dosage: BED TIME-12 UNITS, HS
     Dates: start: 20190902
  3. CARDICOR [Concomitant]
     Active Substance: BISOPROLOL
     Dosage: 2.5 MG, QD (AFTER BREAKFAST)
  4. CO-IRBEWIN [Concomitant]
     Active Substance: HYDROCHLOROTHIAZIDE\IRBESARTAN
     Dosage: 12.5 MG, QD (AFTER BREAKFAST)
  5. CRESTOR [Concomitant]
     Active Substance: ROSUVASTATIN CALCIUM
     Dosage: 40 MG

REACTIONS (8)
  - Polydipsia [Recovered/Resolved]
  - Intentional dose omission [Unknown]
  - Injection site pain [Not Recovered/Not Resolved]
  - Dysuria [Not Recovered/Not Resolved]
  - Mobility decreased [Unknown]
  - Speech disorder [Unknown]
  - Dizziness [Recovered/Resolved]
  - Blood glucose increased [Recovered/Resolved]

NARRATIVE: CASE EVENT DATE: 20190902
